FAERS Safety Report 7955657-5 (Version None)
Quarter: 2011Q4

REPORT INFORMATION
  Report Type: 
  Country: None (occurrence: None)
  Receive Date: 20111204
  Receipt Date: 20110927
  Transmission Date: 20120403
  Serious: No
  Sender: FDA-Public Use
  Company Number: US-ALLERGAN-1112856US

PATIENT
  Age: 23 Year
  Sex: Female

DRUGS (2)
  1. ACZONE [Suspect]
     Indication: ACNE
     Dosage: APPLIED BID THE FIRST DAY, THEN ^SPOT TREATED^ THE SECOND DAY
     Route: 061
  2. SOLODYN [Concomitant]

REACTIONS (4)
  - DRY SKIN [None]
  - SECRETION DISCHARGE [None]
  - PRURITUS [None]
  - PHOTOSENSITIVITY REACTION [None]
